FAERS Safety Report 21721609 (Version 2)
Quarter: 2023Q1

REPORT INFORMATION
  Report Type: Spontaneous
  Country: GB (occurrence: GB)
  Receive Date: 20221213
  Receipt Date: 20230102
  Transmission Date: 20230417
  Serious: Yes (Hospitalization)
  Sender: FDA-Public Use
  Company Number: None

PATIENT
  Age: 67 Year
  Sex: Male

DRUGS (16)
  1. SERTRALINE [Suspect]
     Active Substance: SERTRALINE HYDROCHLORIDE
     Indication: Product used for unknown indication
     Dosage: AT NIGHT
  2. CALCIUM CARBONATE\CHOLECALCIFEROL [Concomitant]
     Active Substance: CALCIUM CARBONATE\CHOLECALCIFEROL
     Dosage: 200 UNITS. ONE IN MORNING AND ONE AT NIGHT.
     Dates: start: 20220112
  3. ALENDRONIC ACID [Concomitant]
     Active Substance: ALENDRONIC ACID
     Dosage: ON THE SAME DAY EACH WEEK - TUESDAY
  4. LANSOPRAZOLE [Concomitant]
     Active Substance: LANSOPRAZOLE
     Dosage: EACH MORNING
  5. NAPROXEN [Concomitant]
     Active Substance: NAPROXEN
     Dosage: 1 EVERY MORNING AND AT NIGHT
  6. ACETAMINOPHEN [Concomitant]
     Active Substance: ACETAMINOPHEN
     Dosage: ONE OR TWO TO BE TAKEN EVERY 4-6 HOURS - TAKES 2TDS - QDS (WITH TRAMADOL)
  7. ALBUTEROL [Concomitant]
     Active Substance: ALBUTEROL
     Dosage: 100MICROGRAMS/DOSE INHALER CFC FREE ONE OR TWO PUFFS TO BE INHALED UP TO?FOU
  8. DALTEPARIN [Concomitant]
     Active Substance: DALTEPARIN
     Dosage: INJECT SUBCUTANEOUSLY THE CONTENTS OF 1 SYRINGE ONCE A DAY FOR 23 DAYS AS DIRECTED.
     Route: 058
  9. ISONIAZID [Concomitant]
     Active Substance: ISONIAZID
     Dosage: EVERY MORNING
  10. FEXOFENADINE [Concomitant]
     Active Substance: FEXOFENADINE HYDROCHLORIDE
     Dosage: 30 TABLET - 1 EVERY MORNING
  11. RIFAMPIN [Concomitant]
     Active Substance: RIFAMPIN
     Dosage: EVERY MORNING AS DIRECTED
  12. TRAMADOL [Concomitant]
     Active Substance: TRAMADOL
     Dosage: TWO TO BE TAKEN INITIALLY THEN ONE OR TWO TO BE TAKEN EVERY FOUR TO SIX HOURS
  13. SARILUMAB [Concomitant]
     Active Substance: SARILUMAB
     Dosage: PRE FILLED PEN (HOMECARE) 200 MG INJECTION
  14. DOXYCYCLINE [Concomitant]
     Active Substance: DOXYCYCLINE
     Dosage: 7 CAPSULE - COMPLETE
  15. AMOXICILLIN [Concomitant]
     Active Substance: AMOXICILLIN
     Dosage: 15 CAPSULE - COMPLETE
  16. PYRIDOXINE [Concomitant]
     Active Substance: PYRIDOXINE
     Dosage: EVERY MORNING

REACTIONS (2)
  - Bone density decreased [Unknown]
  - Femoral neck fracture [Unknown]
